FAERS Safety Report 12407646 (Version 1)
Quarter: 2016Q2

REPORT INFORMATION
  Report Type: Spontaneous
  Country: US (occurrence: US)
  Receive Date: 20160526
  Receipt Date: 20160526
  Transmission Date: 20160815
  Serious: No
  Sender: FDA-Public Use
  Company Number: GXBR2015US001143

PATIENT
  Age: 58 Year
  Sex: Male

DRUGS (1)
  1. OMNITROPE [Suspect]
     Active Substance: SOMATROPIN
     Indication: PRODUCT USED FOR UNKNOWN INDICATION
     Dosage: 0.08 ML 6 TIMES WEEKLY
     Route: 065
     Dates: start: 201501

REACTIONS (2)
  - Insulin-like growth factor decreased [Unknown]
  - Drug ineffective [Unknown]
